FAERS Safety Report 14518876 (Version 3)
Quarter: 2018Q1

REPORT INFORMATION
  Report Type: Spontaneous
  Country: DE (occurrence: DE)
  Receive Date: 20180212
  Receipt Date: 20180320
  Transmission Date: 20180509
  Serious: Yes (Death, Hospitalization, Other)
  Sender: FDA-Public Use
  Company Number: DE-JNJFOC-20180213008

PATIENT

DRUGS (4)
  1. PARACETAMOL [Concomitant]
     Active Substance: ACETAMINOPHEN
     Indication: PREMEDICATION
     Route: 042
  2. DARATUMUMAB [Suspect]
     Active Substance: DARATUMUMAB
     Indication: AMYLOIDOSIS
     Route: 042
     Dates: start: 201610
  3. DEXAMETHASONE. [Concomitant]
     Active Substance: DEXAMETHASONE
     Indication: PREMEDICATION
  4. DARATUMUMAB [Suspect]
     Active Substance: DARATUMUMAB
     Indication: AMYLOIDOSIS
     Route: 042
     Dates: start: 201610

REACTIONS (13)
  - Cardiac failure [Unknown]
  - Cardiac disorder [Fatal]
  - Product use in unapproved indication [Unknown]
  - Peritonitis [Fatal]
  - Atrial fibrillation [Unknown]
  - Upper respiratory tract infection [Unknown]
  - Disease progression [Unknown]
  - Infection [Fatal]
  - Dyspnoea [Unknown]
  - Off label use [Unknown]
  - Lower respiratory tract infection [Unknown]
  - Infusion related reaction [Unknown]
  - Remission not achieved [Unknown]
